FAERS Safety Report 16885061 (Version 2)
Quarter: 2019Q4

REPORT INFORMATION
  Report Type: Spontaneous
  Country: US (occurrence: US)
  Receive Date: 20191004
  Receipt Date: 20191009
  Transmission Date: 20200122
  Serious: Yes (Other)
  Sender: FDA-Public Use
  Company Number: US-PFIZER INC-2019426760

PATIENT
  Age: 58 Year
  Sex: Female
  Weight: 63.5 kg

DRUGS (1)
  1. ESTRING [Suspect]
     Active Substance: ESTRADIOL
     Indication: MENOPAUSE
     Dosage: 2 MG, UNK (STAYS INSERTED FOR 3 MONTHS)
     Route: 067
     Dates: start: 2015

REACTIONS (3)
  - Hot flush [Not Recovered/Not Resolved]
  - Hyperhidrosis [Unknown]
  - Muscle spasms [Unknown]
